FAERS Safety Report 8334989-5 (Version None)
Quarter: 2012Q2

REPORT INFORMATION
  Report Type: 
  Country: None (occurrence: None)
  Receive Date: 20120503
  Receipt Date: 20100323
  Transmission Date: 20120825
  Serious: No
  Sender: FDA-Public Use
  Company Number: US-TEVA-2010001663

PATIENT
  Sex: Female
  Weight: 99.88 kg

DRUGS (7)
  1. NUVIGIL [Suspect]
     Indication: SLEEP APNOEA SYNDROME
     Dosage: 250 MILLIGRAM;
     Route: 048
     Dates: start: 20100312, end: 20100318
  2. CARDIZEM [Concomitant]
  3. LISINOPRIL [Concomitant]
  4. LANTUS [Concomitant]
  5. ZOLOFT [Concomitant]
  6. ATENOLOL [Concomitant]
  7. NOVOLOG [Concomitant]

REACTIONS (2)
  - FEELING JITTERY [None]
  - DRUG INEFFECTIVE [None]
